FAERS Safety Report 5699695-4 (Version None)
Quarter: 2008Q2

REPORT INFORMATION
  Report Type: 
  Country: None (occurrence: None)
  Receive Date: 20080410
  Receipt Date: 20080402
  Transmission Date: 20081010
  Serious: Yes (Other)
  Sender: FDA-Public Use
  Company Number: PHEH2008US02755

PATIENT
  Sex: Female

DRUGS (1)
  1. TEGRETOL [Suspect]
     Indication: GLOSSOPHARYNGEAL NEURALGIA
     Route: 065

REACTIONS (5)
  - LIVER DISORDER [None]
  - MOUTH ULCERATION [None]
  - PAIN [None]
  - RASH [None]
  - SWELLING FACE [None]
